FAERS Safety Report 11169487 (Version 1)
Quarter: 2015Q2

REPORT INFORMATION
  Report Type: Spontaneous
  Country: ES (occurrence: ES)
  Receive Date: 20150605
  Receipt Date: 20150605
  Transmission Date: 20150821
  Serious: Yes (Congenital Anomaly, Other)
  Sender: FDA-Public Use
  Company Number: ES-GILEAD-2015-0156110

PATIENT
  Age: 51 Year
  Sex: Female

DRUGS (1)
  1. HEPSERA [Suspect]
     Active Substance: ADEFOVIR DIPIVOXIL
     Indication: HEPATITIS B
     Dosage: 10 MG, 1 VEZ AL DIA
     Route: 048
     Dates: start: 20080703, end: 20150101

REACTIONS (2)
  - Hypophosphataemia [Recovering/Resolving]
  - Osteomalacia [Recovering/Resolving]

NARRATIVE: CASE EVENT DATE: 20140818
